FAERS Safety Report 25640666 (Version 1)
Quarter: 2025Q3

REPORT INFORMATION
  Report Type: Spontaneous
  Country: BR (occurrence: BR)
  Receive Date: 20250804
  Receipt Date: 20250804
  Transmission Date: 20251021
  Serious: Yes (Death, Hospitalization, Other)
  Sender: ALEXION PHARMACEUTICALS
  Company Number: BR-AstraZeneca-CH-00922726A

PATIENT
  Sex: Female

DRUGS (1)
  1. ULTOMIRIS [Suspect]
     Active Substance: RAVULIZUMAB-CWVZ
     Indication: Paroxysmal nocturnal haemoglobinuria
     Dosage: UNK UNK, Q2W

REACTIONS (6)
  - Death [Fatal]
  - Ulcer [Unknown]
  - Infection [Unknown]
  - Skin infection [Unknown]
  - Thrombosis [Unknown]
  - Therapeutic response decreased [Unknown]
